FAERS Safety Report 5750644-X (Version None)
Quarter: 2008Q2

REPORT INFORMATION
  Report Type: 
  Country: None (occurrence: None)
  Receive Date: 20080528
  Receipt Date: 20080509
  Transmission Date: 20081010
  Serious: No
  Sender: FDA-Public Use
  Company Number: US-ABBOTT-08P-163-0451231-00

PATIENT
  Sex: Male
  Weight: 95.34 kg

DRUGS (8)
  1. SIMCOR [Suspect]
     Indication: BLOOD CHOLESTEROL INCREASED
     Dosage: 500/20MG AT NIGHT
     Route: 048
     Dates: start: 20080508, end: 20080511
  2. SIMCOR [Suspect]
     Dosage: 500/20MG TWO TABLETS AT NIGHT
     Route: 048
     Dates: start: 20080512
  3. CLOPIDOGREL [Concomitant]
     Indication: ANTICOAGULANT THERAPY
     Dosage: ONE HALF TABLET DAILY
     Route: 048
  4. METOPROLOL TARTRATE [Concomitant]
     Indication: CARDIAC DISORDER
     Route: 048
  5. INDAPAMIDE [Concomitant]
     Indication: HYPERTENSION
     Route: 048
  6. VALSARTAN [Concomitant]
     Indication: HYPERTENSION
     Dosage: 80/12.5MG DAILY
     Route: 048
  7. FISH OIL [Concomitant]
     Indication: CARDIAC DISORDER
     Route: 048
  8. ALLIUM SATIVUM [Concomitant]
     Indication: DRUG USE FOR UNKNOWN INDICATION
     Route: 048

REACTIONS (1)
  - FLUSHING [None]
